FAERS Safety Report 8469541 (Version 2)
Quarter: 2013Q2

REPORT INFORMATION
  Report Type: Report from Study
  Country: MX (occurrence: MX)
  Receive Date: 20120321
  Receipt Date: 20130422
  Transmission Date: 20140414
  Serious: Yes (Death)
  Sender: FDA-Public Use
  Company Number: PHHY2012MX024377

PATIENT
  Age: 64 Year
  Sex: Female

DRUGS (1)
  1. CO-DIOVAN [Suspect]
     Indication: HYPERTENSION
     Dosage: 1 DF (160MG VALS/12.5 MG HCTZ), DAILY
     Route: 048
     Dates: start: 20070409

REACTIONS (1)
  - Death [Fatal]
